FAERS Safety Report 7625703-7 (Version None)
Quarter: 2011Q3

REPORT INFORMATION
  Report Type: 
  Country: None (occurrence: None)
  Receive Date: 20110713
  Receipt Date: 20110628
  Transmission Date: 20111222
  Serious: Yes (Disabling)
  Sender: FDA-Public Use
  Company Number: AUR-APL-2011-03796

PATIENT
  Age: 58 Year
  Sex: Male
  Weight: 84.82 kg

DRUGS (6)
  1. EPADERM (PARAFFIN) [Concomitant]
  2. FEXOFENADINE HCL [Concomitant]
  3. PROPRANOLOL [Concomitant]
  4. RAMIPRIL [Concomitant]
  5. AMLODIPINE [Suspect]
     Indication: PRODUCT USED FOR UNKNOWN INDICATION
     Dates: start: 20101004
  6. FLOXACILLIN SODIUM [Concomitant]

REACTIONS (1)
  - DRUG ERUPTION [None]
